FAERS Safety Report 7864222-X (Version None)
Quarter: 2011Q4

REPORT INFORMATION
  Report Type: 
  Country: None (occurrence: None)
  Receive Date: 20111028
  Receipt Date: 20111025
  Transmission Date: 20120403
  Serious: Yes (Other)
  Sender: FDA-Public Use
  Company Number: US-PFIZER INC-2011260103

PATIENT
  Sex: Female
  Weight: 76.644 kg

DRUGS (12)
  1. LYRICA [Suspect]
     Indication: NEURALGIA
     Dosage: 150 MG, 2X/DAY
  2. LYRICA [Suspect]
     Indication: FIBROMYALGIA
     Dosage: 47 MG, 2X/DAY
     Dates: start: 20060101
  3. SOMA [Concomitant]
     Dosage: 315MG 3 TIMES A DAY AS NEEDED
  4. NORCO [Concomitant]
     Indication: KNEE ARTHROPLASTY
     Dosage: UNK, AS NEEDED
  5. ZOLOFT [Suspect]
     Indication: DEPRESSION
     Dosage: UNK
  6. LYRICA [Suspect]
     Indication: SCIATICA
     Dosage: 100 MG, 2X/DAY
  7. ELAVIL [Concomitant]
     Indication: NEURALGIA
     Dosage: 50 MG, DAILY
  8. ATIVAN [Concomitant]
     Dosage: 2 MG, AS NEEDED
  9. OXYCONTIN [Concomitant]
     Indication: NEURALGIA
     Dosage: 200 MG, DAILY
  10. PROMETHAZINE [Concomitant]
     Indication: NAUSEA
     Dosage: 25 MG, AS NEEDED
  11. LYRICA [Suspect]
     Dosage: UNK
  12. PRILOSEC [Concomitant]
     Dosage: 40 MG, DAILY

REACTIONS (9)
  - VISION BLURRED [None]
  - NEURALGIA [None]
  - SOMNOLENCE [None]
  - VISUAL ACUITY REDUCED [None]
  - DEPRESSION [None]
  - DRUG INEFFECTIVE [None]
  - WEIGHT INCREASED [None]
  - OEDEMA PERIPHERAL [None]
  - FATIGUE [None]
